FAERS Safety Report 13044035 (Version 1)
Quarter: 2016Q4

REPORT INFORMATION
  Report Type: Spontaneous
  Country: US (occurrence: US)
  Receive Date: 20161220
  Receipt Date: 20161220
  Transmission Date: 20170207
  Serious: Yes (Hospitalization)
  Sender: FDA-Public Use
  Company Number: US-ROCHE-1019052

PATIENT
  Sex: Female

DRUGS (1)
  1. ZELBORAF [Suspect]
     Active Substance: VEMURAFENIB
     Indication: PRODUCT USED FOR UNKNOWN INDICATION
     Dosage: UNKNOWN
     Route: 065

REACTIONS (10)
  - Fatigue [Unknown]
  - Visual acuity reduced [Unknown]
  - Blister [Unknown]
  - Pain [Unknown]
  - Rash [Unknown]
  - Erythema [Unknown]
  - Limb mass [Unknown]
  - Sunburn [Unknown]
  - Decreased appetite [Unknown]
  - Constipation [Unknown]
